FAERS Safety Report 7006171-5 (Version None)
Quarter: 2010Q3

REPORT INFORMATION
  Report Type: 
  Country: None (occurrence: None)
  Receive Date: 20100921
  Receipt Date: 20100910
  Transmission Date: 20110219
  Serious: Yes (Disabling)
  Sender: FDA-Public Use
  Company Number: US-PFIZER INC-2010091451

PATIENT
  Sex: Female
  Weight: 75.283 kg

DRUGS (3)
  1. GEODON [Suspect]
     Indication: SCHIZOAFFECTIVE DISORDER
     Dosage: 20 MG, 2 CAPSULES EVERY AM AND 7 CAPSULES AT HS
     Route: 048
     Dates: start: 20040101, end: 20100101
  2. GEODON [Suspect]
     Dosage: 20 MG, UNK
     Route: 048
  3. TRILEPTAL [Suspect]
     Dosage: 150 MG TABLET, 1/2-1, 2XDAY
     Dates: start: 20080101

REACTIONS (4)
  - EOSINOPHIL COUNT INCREASED [None]
  - MUSCULOSKELETAL STIFFNESS [None]
  - PARAESTHESIA [None]
  - REPETITIVE STRAIN INJURY [None]
